FAERS Safety Report 5611738-2 (Version None)
Quarter: 2008Q1

REPORT INFORMATION
  Report Type: 
  Country: None (occurrence: None)
  Receive Date: 20080204
  Receipt Date: 20070926
  Transmission Date: 20080703
  Serious: No
  Sender: FDA-Public Use
  Company Number: US-BAYER-200713122BCC

PATIENT
  Age: 35 Year
  Sex: Male
  Weight: 98 kg

DRUGS (2)
  1. ALEVE COLD AND SINUS [Suspect]
     Indication: PAIN
     Dosage: AS USED: 220/120 MG  UNIT DOSE: 220 MG
     Route: 048
     Dates: start: 20070924
  2. ALEVE COLD AND SINUS [Suspect]
     Dosage: AS USED: 220/120 MG  UNIT DOSE: 220 MG
     Route: 048
     Dates: start: 20070925

REACTIONS (2)
  - DIZZINESS [None]
  - VOMITING [None]
